FAERS Safety Report 21374549 (Version 1)
Quarter: 2022Q3

REPORT INFORMATION
  Report Type: Spontaneous
  Country: US (occurrence: US)
  Receive Date: 20220926
  Receipt Date: 20220926
  Transmission Date: 20221026
  Serious: No
  Sender: FDA-Public Use
  Company Number: US-ALLERGAN-2224816US

PATIENT
  Sex: Male

DRUGS (1)
  1. DURYSTA [Suspect]
     Active Substance: BIMATOPROST
     Indication: Intraocular pressure test
     Dosage: 0.01 MG, SINGLE
     Route: 047
     Dates: start: 20220726, end: 20220726

REACTIONS (2)
  - Product administered at inappropriate site [Unknown]
  - Complication of device insertion [Not Recovered/Not Resolved]

NARRATIVE: CASE EVENT DATE: 20220726
